FAERS Safety Report 18376022 (Version 1)
Quarter: 2020Q4

REPORT INFORMATION
  Report Type: Spontaneous
  Country: GB (occurrence: GB)
  Receive Date: 20201013
  Receipt Date: 20201013
  Transmission Date: 20210114
  Serious: Yes (Other)
  Sender: FDA-Public Use
  Company Number: GB-LUPIN PHARMACEUTICALS INC.-2020-07132

PATIENT
  Age: 66 Year
  Sex: Male

DRUGS (1)
  1. CLOBETASOL PROPIONATE. [Suspect]
     Active Substance: CLOBETASOL PROPIONATE
     Indication: CUTANEOUS SARCOIDOSIS
     Dosage: UNK
     Route: 061

REACTIONS (1)
  - Squamous cell carcinoma of skin [Unknown]
